FAERS Safety Report 5527882-4 (Version None)
Quarter: 2007Q4

REPORT INFORMATION
  Report Type: 
  Country: None (occurrence: None)
  Receive Date: 20071126
  Receipt Date: 20071126
  Transmission Date: 20080405
  Serious: Yes (Other)
  Sender: FDA-Public Use
  Company Number: None

PATIENT
  Age: 58 Year
  Sex: Female
  Weight: 63.5036 kg

DRUGS (1)
  1. ZYPREXA [Suspect]
     Indication: MAJOR DEPRESSION
     Dosage: 5 MG  TWICE A DAY  PO
     Route: 048
     Dates: start: 20071019, end: 20071119

REACTIONS (8)
  - FLUID RETENTION [None]
  - INFLAMMATION OF WOUND [None]
  - OEDEMA PERIPHERAL [None]
  - OPEN WOUND [None]
  - PITTING OEDEMA [None]
  - WEIGHT INCREASED [None]
  - WOUND INFECTION [None]
  - WOUND SECRETION [None]
